FAERS Safety Report 24437699 (Version 1)
Quarter: 2024Q4

REPORT INFORMATION
  Report Type: Spontaneous
  Country: US (occurrence: None)
  Receive Date: 20241014
  Receipt Date: 20241014
  Transmission Date: 20250115
  Serious: Yes (Death)
  Sender: Public
  Company Number: None

PATIENT
  Age: 72 Year
  Sex: Male

DRUGS (16)
  1. CAPECITABINE [Suspect]
     Active Substance: CAPECITABINE
  2. COLACE 100MG [Concomitant]
  3. ASPIRIN [Concomitant]
     Active Substance: ASPIRIN
  4. CRESTOR 20MG TABLETS [Concomitant]
  5. LANSOPRAZOLE 15MG DR CAPSULES [Concomitant]
  6. LYUMJEV KWIKPEN 200U/ML [Concomitant]
  7. MELATONIN 10-10MG [Concomitant]
  8. MELOXICAM 15MG TABLETS [Concomitant]
  9. METFORMIN 1000MG TABLETS [Concomitant]
  10. RAMIPRIL 5MG CAPSULES [Concomitant]
  11. SOMA 350MG TABLETS [Concomitant]
  12. TAMSULOSIN 0.4MG CAPSULES [Concomitant]
  13. TRAMADOL 50MG TABLETS [Concomitant]
  14. TRESIBA 100UNIT INJ, 10ML [Concomitant]
  15. VALERIAN ROOT 530MG CAPSULES N/R [Concomitant]
  16. ZOLPIDEM TARTRATE 1.75MG SUBL TABS [Concomitant]
     Indication: Pancreatic carcinoma
     Dates: start: 20240906

REACTIONS (1)
  - Death [None]
